FAERS Safety Report 7370774-9 (Version None)
Quarter: 2011Q1

REPORT INFORMATION
  Report Type: 
  Country: None (occurrence: None)
  Receive Date: 20110324
  Receipt Date: 20110223
  Transmission Date: 20110831
  Serious: Yes (Other)
  Sender: FDA-Public Use
  Company Number: US-AMGEN-USASP2011011366

PATIENT
  Age: 62 Year
  Sex: Female

DRUGS (9)
  1. METHOTREXATE [Concomitant]
  2. PREDNISONE [Concomitant]
  3. PREDNISONE [Concomitant]
     Dosage: 7.5 MG DAILY
  4. METFORMIN HYDROCHLORIDE [Concomitant]
  5. SIMVASTATIN [Concomitant]
  6. ENBREL [Suspect]
     Indication: RHEUMATOID ARTHRITIS
     Dosage: UNK
  7. PANTOPRAZOLE [Concomitant]
  8. LEVOTHYROXINE SODIUM [Concomitant]
  9. LISINOPRIL [Concomitant]

REACTIONS (3)
  - SYSTEMIC LUPUS ERYTHEMATOSUS [None]
  - LEUKOPENIA [None]
  - ORAL HERPES [None]
